FAERS Safety Report 23372881 (Version 3)
Quarter: 2024Q1

REPORT INFORMATION
  Report Type: Spontaneous
  Country: US (occurrence: US)
  Receive Date: 20240105
  Receipt Date: 20240320
  Transmission Date: 20240409
  Serious: No
  Sender: FDA-Public Use
  Company Number: US-PFIZER INC-202300458079

PATIENT
  Age: 69 Year
  Sex: Male
  Weight: 85.714 kg

DRUGS (9)
  1. PAXLOVID [Suspect]
     Active Substance: NIRMATRELVIR\RITONAVIR
     Indication: COVID-19 treatment
     Dosage: UNK UNK, 2X/DAY
     Dates: start: 20231218, end: 20231222
  2. ASPIRIN [Concomitant]
     Active Substance: ASPIRIN
     Dosage: FOR 3 YEARS
     Dates: start: 20191201
  3. ATORVASTATIN [Concomitant]
     Active Substance: ATORVASTATIN
     Dosage: UNK
     Dates: start: 20191201, end: 20231217
  4. ATORVASTATIN [Concomitant]
     Active Substance: ATORVASTATIN
     Dosage: UNK
  5. SYMBICORT [Concomitant]
     Active Substance: BUDESONIDE\FORMOTEROL FUMARATE DIHYDRATE
     Dosage: AS NEEDED
     Dates: start: 20191201
  6. TADALAFIL [Concomitant]
     Active Substance: TADALAFIL
     Dosage: FOR 3 YEARS
     Dates: start: 20191201
  7. DILTIAZEM [Concomitant]
     Active Substance: DILTIAZEM
     Dosage: FOR 3 YEARS
     Dates: start: 20201201
  8. VITAMIN D3 [Concomitant]
     Active Substance: CHOLECALCIFEROL
     Dosage: FOR 3 YEARS
     Dates: start: 20201201
  9. MAGNESIUM [Concomitant]
     Active Substance: MAGNESIUM
     Dosage: FOR 3 YEARS
     Dates: start: 20191201

REACTIONS (2)
  - COVID-19 [Recovered/Resolved]
  - Disease recurrence [Recovered/Resolved]

NARRATIVE: CASE EVENT DATE: 20231228
